FAERS Safety Report 9918599 (Version 1)
Quarter: 2014Q1

REPORT INFORMATION
  Report Type: Spontaneous
  Country: US (occurrence: US)
  Receive Date: 20140224
  Receipt Date: 20140224
  Transmission Date: 20141002
  Serious: No
  Sender: FDA-Public Use
  Company Number: US-BIOGENIDEC-2014BI015543

PATIENT
  Sex: Female

DRUGS (14)
  1. TECFIDERA [Suspect]
     Indication: MULTIPLE SCLEROSIS
     Route: 048
     Dates: start: 201308
  2. MIRTAZAPINE [Concomitant]
  3. KLOR-CON M15 [Concomitant]
  4. CALCIUM 500 [Concomitant]
  5. ZINC [Concomitant]
  6. CLONAZEPAM [Concomitant]
  7. ATORVASTATIN CALCIUM [Concomitant]
  8. DOXAZOSIN MESYLATE [Concomitant]
  9. VITAMIN D [Concomitant]
  10. OMEPRAZOLE [Concomitant]
  11. PLAVIX [Concomitant]
  12. ASPIRIN ADULT LOW STRENGTH [Concomitant]
  13. SPIRONOLACTONE [Concomitant]
  14. TRENTAL [Concomitant]

REACTIONS (2)
  - Overdose [Unknown]
  - Flushing [Unknown]
